FAERS Safety Report 16811937 (Version 2)
Quarter: 2019Q4

REPORT INFORMATION
  Report Type: Spontaneous
  Country: FR (occurrence: FR)
  Receive Date: 20190916
  Receipt Date: 20191106
  Transmission Date: 20200122
  Serious: Yes (Hospitalization, Other)
  Sender: FDA-Public Use
  Company Number: FR-MYLANLABS-2019M1085791

PATIENT
  Age: 85 Year
  Sex: Male
  Weight: 59 kg

DRUGS (9)
  1. SPIRIVA [Concomitant]
     Active Substance: TIOTROPIUM BROMIDE MONOHYDRATE
     Dosage: 2 DOSAGE FORM, QD (2 IN THE MORNING)
  2. BRICANYL [Concomitant]
     Active Substance: TERBUTALINE SULFATE
     Dosage: 500 DOSAGE FORM, QD (500 DOSAGE FORM, PRN)
  3. REPAGLINIDE. [Suspect]
     Active Substance: REPAGLINIDE
     Indication: PRODUCT USED FOR UNKNOWN INDICATION
     Dosage: 3 MILLIGRAM, QD,1 MILLIGRAM, THRICE PER DAY
     Route: 065
  4. JANUVIA [Suspect]
     Active Substance: SITAGLIPTIN PHOSPHATE
     Dosage: 100 MILLIGRAM, QD
     Route: 048
     Dates: start: 201803, end: 201811
  5. METFORMIN [Concomitant]
     Active Substance: METFORMIN HYDROCHLORIDE
     Dosage: 2 DOSAGE FORM, QD (1 IN THE MORNING AND IN THE EVENING)
  6. REPAGLINIDE. [Concomitant]
     Active Substance: REPAGLINIDE
     Dosage: 3 MILLIGRAM, QD (1 MILLIGRAM, TID)
  7. SYMBICORT [Concomitant]
     Active Substance: BUDESONIDE\FORMOTEROL FUMARATE DIHYDRATE
     Dosage: 4 DOSAGE FORM, QD (2 IN THE MORNING AND IN THE EVENING)
  8. LACTULOSE. [Concomitant]
     Active Substance: LACTULOSE
     Dosage: 2 DOSAGE FORM, QD (2 PER DAY)
  9. JANUVIA [Suspect]
     Active Substance: SITAGLIPTIN PHOSPHATE
     Indication: TYPE 2 DIABETES MELLITUS
     Dosage: UNK
     Route: 065
     Dates: end: 2019

REACTIONS (2)
  - Off label use [Unknown]
  - Pancreatitis acute [Unknown]

NARRATIVE: CASE EVENT DATE: 201811
